FAERS Safety Report 8857164 (Version 1)
Quarter: 2012Q4

REPORT INFORMATION
  Report Type: 
  Country: BR (occurrence: BR)
  Receive Date: 20121024
  Receipt Date: 20121024
  Transmission Date: 20130627
  Serious: Yes (Hospitalization)
  Sender: FDA-Public Use
  Company Number: BR-ASTRAZENECA-2012SE79040

PATIENT
  Sex: Female

DRUGS (6)
  1. ATACAND HCT [Suspect]
     Indication: HYPERTENSION
     Dosage: 16/12.5 MG
     Route: 048
     Dates: start: 2004, end: 20121014
  2. SUSTRATE [Concomitant]
     Route: 048
  3. BALCOR [Concomitant]
     Route: 048
  4. ALPRAZOLAM [Concomitant]
     Route: 048
  5. MOTILIUM [Concomitant]
     Indication: DYSPEPSIA
     Route: 048
  6. BENERVA [Concomitant]
     Indication: SUPPLEMENTATION THERAPY
     Route: 048

REACTIONS (2)
  - Device malfunction [Recovered/Resolved]
  - Blood pressure decreased [Unknown]
